FAERS Safety Report 10709803 (Version 1)
Quarter: 2015Q1

REPORT INFORMATION
  Report Type: Spontaneous
  Country: US (occurrence: US)
  Receive Date: 20150114
  Receipt Date: 20150114
  Transmission Date: 20150721
  Serious: No
  Sender: FDA-Public Use
  Company Number: US-PFIZER INC-2015016316

PATIENT
  Age: 42 Year
  Sex: Male
  Weight: 136.5 kg

DRUGS (2)
  1. LYRICA [Suspect]
     Active Substance: PREGABALIN
     Dosage: UNK
  2. INSULIN [Concomitant]
     Active Substance: INSULIN NOS
     Indication: BLOOD GLUCOSE ABNORMAL
     Dosage: UNK

REACTIONS (1)
  - Pain [Unknown]

NARRATIVE: CASE EVENT DATE: 20150110
